FAERS Safety Report 23674245 (Version 2)
Quarter: 2024Q2

REPORT INFORMATION
  Report Type: Spontaneous
  Country: BG (occurrence: BG)
  Receive Date: 20240326
  Receipt Date: 20240410
  Transmission Date: 20240716
  Serious: Yes (Hospitalization, Disabling)
  Sender: FDA-Public Use
  Company Number: None

PATIENT
  Age: 72 Year
  Sex: Male

DRUGS (1)
  1. BEOVU [Suspect]
     Active Substance: BROLUCIZUMAB-DBLL
     Indication: Macular degeneration
     Dosage: UNK
     Route: 031
     Dates: start: 20240222, end: 20240222

REACTIONS (5)
  - Endophthalmitis [Recovering/Resolving]
  - Retinal haemorrhage [Recovering/Resolving]
  - Hypopyon [Recovering/Resolving]
  - Visual impairment [Recovering/Resolving]
  - Eye irritation [Recovering/Resolving]

NARRATIVE: CASE EVENT DATE: 20240306
